FAERS Safety Report 7040410-X (Version None)
Quarter: 2010Q4

REPORT INFORMATION
  Report Type: 
  Country: None (occurrence: None)
  Receive Date: 20101008
  Receipt Date: 20101008
  Transmission Date: 20110411
  Serious: Yes (Other)
  Sender: FDA-Public Use
  Company Number: None

PATIENT
  Sex: Male
  Weight: 108.8633 kg

DRUGS (1)
  1. ENABLEX [Suspect]
     Indication: PROSTATOMEGALY
     Dosage: 1 TAB DAILY
     Dates: start: 20100811, end: 20100910

REACTIONS (1)
  - ALOPECIA [None]
